FAERS Safety Report 5227763-X (Version None)
Quarter: 2007Q1

REPORT INFORMATION
  Report Type: 
  Country: None (occurrence: None)
  Receive Date: 20070202
  Receipt Date: 20070126
  Transmission Date: 20070707
  Serious: No
  Sender: FDA-Public Use
  Company Number: DE-MERCK-0611DEU00040

PATIENT
  Age: 63 Year
  Sex: Female
  Weight: 54 kg

DRUGS (7)
  1. VYTORIN [Suspect]
     Indication: HYPERCHOLESTEROLAEMIA
     Route: 048
     Dates: start: 20060424, end: 20060427
  2. METOPROLOL SUCCINATE [Concomitant]
     Indication: HYPERTENSION
     Route: 048
     Dates: start: 20020221
  3. PROPAFENONE HYDROCHLORIDE [Concomitant]
     Route: 065
     Dates: start: 20051202
  4. PHENPROCOUMON [Concomitant]
     Route: 048
     Dates: start: 20051202
  5. CARBIMAZOLE [Concomitant]
     Indication: HYPERTHYROIDISM
     Route: 065
     Dates: start: 20020521
  6. RAMIPRIL [Concomitant]
     Indication: HYPERTENSION
     Route: 048
     Dates: start: 20051202
  7. HYDROCHLOROTHIAZIDE AND RAMIPRIL [Concomitant]
     Indication: HYPERTENSION
     Route: 048
     Dates: start: 20051202

REACTIONS (1)
  - ANGINA PECTORIS [None]
